FAERS Safety Report 18696729 (Version 1)
Quarter: 2021Q1

REPORT INFORMATION
  Report Type: Report from Study
  Country: IN (occurrence: IN)
  Receive Date: 20210104
  Receipt Date: 20210104
  Transmission Date: 20210419
  Serious: Yes (Death)
  Sender: FDA-Public Use
  Company Number: IN-ASTRAZENECA-2021A000192

PATIENT
  Age: 64 Year
  Sex: Female

DRUGS (11)
  1. CRESTOR [Concomitant]
     Active Substance: ROSUVASTATIN CALCIUM
     Indication: BLOOD CHOLESTEROL ABNORMAL
     Route: 048
     Dates: end: 202009
  2. PROMINAD [Concomitant]
     Indication: DIABETES MELLITUS
     Route: 048
     Dates: end: 202009
  3. LN?BETA [Concomitant]
     Indication: BLOOD PRESSURE MEASUREMENT
     Dosage: TWO TIMES A DAY
     Route: 048
     Dates: end: 202009
  4. BRILINTA [Suspect]
     Active Substance: TICAGRELOR
     Indication: CARDIAC DISORDER
     Route: 048
     Dates: end: 202009
  5. DIAMICRON XR [Concomitant]
     Active Substance: GLICLAZIDE
     Indication: DIABETES MELLITUS
     Dosage: EVERY 12 HOURS
     Route: 048
     Dates: end: 202009
  6. BRILINTA [Suspect]
     Active Substance: TICAGRELOR
     Indication: CARDIAC DISORDER
     Route: 048
     Dates: end: 202009
  7. GALVUSMET [Concomitant]
     Active Substance: METFORMIN HYDROCHLORIDE\VILDAGLIPTIN
     Indication: DIABETES MELLITUS
     Dosage: EVERY 12 HOURS
     Route: 048
     Dates: end: 202009
  8. GANADON TOTAL [Concomitant]
     Indication: ACID BASE BALANCE ABNORMAL
     Dosage: TWO TIMES A DAY
     Route: 048
     Dates: end: 202009
  9. CARTINEX [Concomitant]
     Indication: CARDIAC DISORDER
     Route: 065
     Dates: end: 202009
  10. ASPIRIN. [Concomitant]
     Active Substance: ASPIRIN
     Indication: CARDIAC DISORDER
     Route: 048
     Dates: end: 202009
  11. CARDACE [Concomitant]
     Indication: BLOOD PRESSURE ABNORMAL
     Route: 048
     Dates: end: 202009

REACTIONS (1)
  - Myocardial infarction [Fatal]

NARRATIVE: CASE EVENT DATE: 202009
